FAERS Safety Report 8789841 (Version 1)
Quarter: 2012Q4

REPORT INFORMATION
  Report Type: 
  Country: US (occurrence: US)
  Receive Date: 20120917
  Receipt Date: 20120917
  Transmission Date: 20130627
  Serious: Yes (Hospitalization)
  Sender: FDA-Public Use
  Company Number: US-ASTRAZENECA-2012SE70454

PATIENT
  Age: 29 Year
  Sex: Female
  Weight: 77.1 kg

DRUGS (3)
  1. SEROQUEL XR [Suspect]
     Indication: BIPOLAR DISORDER
     Route: 048
     Dates: start: 201109
  2. LITHIUM [Concomitant]
     Dosage: 300 MG AND 600 MG DAILY
  3. DEPAKOTE [Concomitant]
     Route: 048

REACTIONS (5)
  - Mania [Recovered/Resolved]
  - Binge eating [Recovering/Resolving]
  - Depression [Recovering/Resolving]
  - Hypersomnia [Recovering/Resolving]
  - Asthenia [Recovering/Resolving]
